FAERS Safety Report 5961717-0 (Version None)
Quarter: 2008Q4

REPORT INFORMATION
  Report Type: 
  Country: None (occurrence: None)
  Receive Date: 20081114
  Receipt Date: 20080819
  Transmission Date: 20090506
  Serious: No
  Sender: FDA-Public Use
  Company Number: WAES 0808USA03577

PATIENT
  Sex: Male

DRUGS (6)
  1. ISENTRESS [Suspect]
     Indication: HIV INFECTION
     Dosage: 400 MG/BID/PO
     Route: 048
  2. EPIVIR [Concomitant]
  3. INTELENCE [Concomitant]
  4. NORVIR [Concomitant]
  5. PREZISTA [Concomitant]
  6. SELZENTRY [Concomitant]

REACTIONS (1)
  - ALOPECIA [None]
